FAERS Safety Report 26082710 (Version 1)
Quarter: 2025Q4

REPORT INFORMATION
  Report Type: Spontaneous
  Country: GB (occurrence: GB)
  Receive Date: 20251124
  Receipt Date: 20251124
  Transmission Date: 20260118
  Serious: Yes (Other)
  Sender: ADVANZ PHARMA
  Company Number: GB-MHRA-37595598

PATIENT

DRUGS (1)
  1. PREDNISOLONE [Suspect]
     Active Substance: PREDNISOLONE
     Indication: Ulcer
     Dosage: 5 MG (MOUTHWASH)
     Route: 065

REACTIONS (4)
  - Arthralgia [Unknown]
  - Myalgia [Unknown]
  - Malaise [Unknown]
  - Product formulation issue [Unknown]
